FAERS Safety Report 9523435 (Version 1)
Quarter: 2013Q1

REPORT INFORMATION
  Report Type: Spontaneous
  Country: US (occurrence: None)
  Receive Date: 20130305
  Receipt Date: 20130305
  Transmission Date: 20140127
  Serious: Yes (Hospitalization)
  Sender: FDA-Public Use
  Company Number: 163-21880-12012661

PATIENT
  Age: 76 Year
  Sex: Female
  Weight: 82.1 kg

DRUGS (1)
  1. REVLIMID (LENALIDOMIDE) (10 MILLIGRAM, CAPSULES) [Suspect]
     Indication: LEUKOCYTOSIS
     Route: 048
     Dates: start: 20110808

REACTIONS (1)
  - Thrombocytopenia [None]
